FAERS Safety Report 14055699 (Version 1)
Quarter: 2017Q4

REPORT INFORMATION
  Report Type: Report from Study
  Country: NL (occurrence: NL)
  Receive Date: 20171006
  Receipt Date: 20171006
  Transmission Date: 20180321
  Serious: Yes (Hospitalization)
  Sender: FDA-Public Use
  Company Number: NL-TEVA-813075ROM

PATIENT
  Age: 16 Year
  Sex: Female

DRUGS (1)
  1. METHYLPHENIDATE. [Suspect]
     Active Substance: METHYLPHENIDATE
     Dosage: 11.4 MG/KG MODERATE RELEASE
     Route: 048

REACTIONS (4)
  - Tachypnoea [Unknown]
  - Headache [Unknown]
  - Nausea [Unknown]
  - Toxicity to various agents [Unknown]
